FAERS Safety Report 13153474 (Version 1)
Quarter: 2017Q1

REPORT INFORMATION
  Report Type: Spontaneous
  Country: US (occurrence: US)
  Receive Date: 20170126
  Receipt Date: 20170126
  Transmission Date: 20170428
  Serious: Yes (Other)
  Sender: FDA-Public Use
  Company Number: US-ACADIA PHARMACEUTICALS INC.-ACA-2017-001943

PATIENT

DRUGS (1)
  1. NUPLAZID [Suspect]
     Active Substance: PIMAVANSERIN TARTRATE
     Indication: PRODUCT USED FOR UNKNOWN INDICATION
     Dosage: 17 MG, AT NIGHT
     Route: 048
     Dates: start: 20170113

REACTIONS (8)
  - Asthenia [Unknown]
  - Incorrect dose administered [Unknown]
  - Hypokinesia [Unknown]
  - Urine flow decreased [Unknown]
  - Abnormal behaviour [Unknown]
  - Abasia [Unknown]
  - Hypersomnia [Unknown]
  - Paralysis [Unknown]

NARRATIVE: CASE EVENT DATE: 20170113
